FAERS Safety Report 18881489 (Version 1)
Quarter: 2021Q1

REPORT INFORMATION
  Report Type: Report from Study
  Country: US (occurrence: US)
  Receive Date: 20210211
  Receipt Date: 20210211
  Transmission Date: 20210420
  Serious: No
  Sender: FDA-Public Use
  Company Number: US-BIOVITRUM-2020US5976

PATIENT
  Age: 5 Year
  Sex: Female

DRUGS (1)
  1. KINERET [Suspect]
     Active Substance: ANAKINRA
     Indication: JUVENILE IDIOPATHIC ARTHRITIS
     Route: 058
     Dates: start: 20201015

REACTIONS (9)
  - Sinusitis [Unknown]
  - Injection site warmth [Unknown]
  - Serum ferritin abnormal [Unknown]
  - Injection site erythema [Unknown]
  - Injection site swelling [Unknown]
  - Off label use [Unknown]
  - Genital swelling [Unknown]
  - Injection site bruising [Unknown]
  - Injection site induration [Unknown]

NARRATIVE: CASE EVENT DATE: 20201015
